FAERS Safety Report 7364574-3 (Version None)
Quarter: 2011Q1

REPORT INFORMATION
  Report Type: 
  Country: None (occurrence: None)
  Receive Date: 20110321
  Receipt Date: 20110316
  Transmission Date: 20110831
  Serious: Yes (Disabling)
  Sender: FDA-Public Use
  Company Number: BR-ABBOTT-11P-020-0712346-00

PATIENT
  Sex: Female
  Weight: 85 kg

DRUGS (10)
  1. FLUOXETINE [Concomitant]
     Indication: TRIGEMINAL NERVE DISORDER
     Route: 048
  2. HUMIRA [Suspect]
     Indication: RHEUMATOID ARTHRITIS
     Route: 058
  3. FLUNARIN [Suspect]
     Indication: CRANIAL NERVE INFECTION
     Route: 048
  4. LOVAZA [Concomitant]
     Indication: MEMORY IMPAIRMENT
     Route: 048
  5. PARACETAMOL 500MG/ CODEINE 30MG [Concomitant]
     Indication: PAIN
     Route: 048
  6. CYCLOSPORINE [Concomitant]
     Indication: RHEUMATOID ARTHRITIS
     Route: 048
  7. METHOTREXATE [Concomitant]
     Indication: RHEUMATOID ARTHRITIS
     Route: 048
  8. ENALAPRIL [Concomitant]
     Indication: RHEUMATOID ARTHRITIS
     Route: 048
  9. TEGRETOL [Suspect]
     Indication: CRANIAL NERVE INFECTION
     Route: 048
  10. PRESSEL [Concomitant]
     Indication: BLOOD PRESSURE
     Route: 048

REACTIONS (9)
  - DIABETES MELLITUS [None]
  - MALAISE [None]
  - HYPOACUSIS [None]
  - ARTHRALGIA [None]
  - TINNITUS [None]
  - CRANIAL NERVE INFECTION [None]
  - GASTRIC DISORDER [None]
  - GAIT DISTURBANCE [None]
  - INFECTION [None]
